FAERS Safety Report 19933934 (Version 1)
Quarter: 2021Q4

REPORT INFORMATION
  Report Type: Spontaneous
  Country: KR (occurrence: KR)
  Receive Date: 20211008
  Receipt Date: 20211008
  Transmission Date: 20220304
  Serious: Yes (Death, Hospitalization, Congenital Anomaly, Other)
  Sender: FDA-Public Use
  Company Number: KR-DSJP-DSJ-2021-132375AA

PATIENT
  Sex: Male
  Weight: 2.15 kg

DRUGS (1)
  1. AMLODIPINE BESYLATE\OLMESARTAN MEDOXOMIL [Suspect]
     Active Substance: AMLODIPINE BESYLATE\OLMESARTAN MEDOXOMIL
     Indication: Hypertension
     Dosage: 1 DF, QD

REACTIONS (13)
  - Cardiac arrest [Fatal]
  - Respiratory failure [Unknown]
  - Renal failure [Unknown]
  - Pneumothorax [Unknown]
  - Hypotension [Unknown]
  - Newborn persistent pulmonary hypertension [Unknown]
  - Patent ductus arteriosus [Unknown]
  - Atrial septal defect [Unknown]
  - Anuria [Unknown]
  - Renal aplasia [Unknown]
  - Disseminated intravascular coagulation in newborn [Unknown]
  - Hyperkalaemia [Unknown]
  - Foetal exposure during pregnancy [Unknown]
